FAERS Safety Report 12636863 (Version 1)
Quarter: 2016Q3

REPORT INFORMATION
  Report Type: Report from Study
  Country: JP (occurrence: JP)
  Receive Date: 20160809
  Receipt Date: 20160809
  Transmission Date: 20161109
  Serious: Yes (Death)
  Sender: FDA-Public Use
  Company Number: JP-DSJP-DSJ-2016-126888

PATIENT

DRUGS (8)
  1. EDOXABAN [Suspect]
     Active Substance: EDOXABAN TOSYLATE
     Dosage: 15 MG, QD
     Route: 048
     Dates: start: 20160510, end: 20160724
  2. AMLODIPINE                         /00972402/ [Concomitant]
     Active Substance: AMLODIPINE BESYLATE
     Dosage: 5MG/DAY
     Route: 048
  3. MEMARY [Concomitant]
     Active Substance: MEMANTINE HYDROCHLORIDE
     Dosage: 20MG/DAY
     Route: 048
  4. FLIVAS [Concomitant]
     Active Substance: NAFTOPIDIL
     Dosage: 25MG/DAY
     Route: 048
  5. OVULANZE [Concomitant]
     Active Substance: OMEPRAZOLE
     Dosage: 10MG/DAY
     Route: 048
  6. DONEPEZIL HYDROCHLORIDE. [Concomitant]
     Active Substance: DONEPEZIL HYDROCHLORIDE
     Dosage: 10MG/DAY
     Route: 048
  7. EDOXABAN [Suspect]
     Active Substance: EDOXABAN TOSYLATE
     Indication: ATRIAL FIBRILLATION
     Dosage: 30 MG, QD
     Route: 048
     Dates: start: 20160406, end: 20160509
  8. TIMKENT [Concomitant]
     Dosage: 20MG/DAY
     Route: 048

REACTIONS (2)
  - Pneumonia aspiration [Fatal]
  - Haemorrhage subcutaneous [Recovered/Resolved]

NARRATIVE: CASE EVENT DATE: 20160501
